FAERS Safety Report 8002470-9 (Version None)
Quarter: 2011Q4

REPORT INFORMATION
  Report Type: 
  Country: None (occurrence: None)
  Receive Date: 20111220
  Receipt Date: 20111212
  Transmission Date: 20120403
  Serious: Yes (Other)
  Sender: FDA-Public Use
  Company Number: AUR-APL-2011-06111

PATIENT
  Age: 66 Year
  Sex: Female
  Weight: 49.8957 kg

DRUGS (2)
  1. ALENDRONIC ACID (ALENDORIC ACID)(ALENDRONIC ACID, ALENDRONIC ACID) [Suspect]
     Indication: OSTEOPOROSIS
     Dosage: (70 MG, 1 WK), ORAL
     Route: 048
  2. LEVOTHYROXINE SODIUM [Concomitant]

REACTIONS (3)
  - DYSPEPSIA [None]
  - BLOOD URINE PRESENT [None]
  - ABDOMINAL PAIN [None]
